FAERS Safety Report 6836879-3 (Version None)
Quarter: 2010Q3

REPORT INFORMATION
  Report Type: 
  Country: None (occurrence: None)
  Receive Date: 20100713
  Receipt Date: 20070501
  Transmission Date: 20110219
  Serious: No
  Sender: FDA-Public Use
  Company Number: US-PFIZER INC-2007036304

PATIENT
  Sex: Male
  Weight: 56.8 kg

DRUGS (4)
  1. CHANTIX [Suspect]
     Indication: SMOKING CESSATION THERAPY
     Dates: start: 20070423
  2. LOVASTATIN [Concomitant]
     Indication: BLOOD CHOLESTEROL INCREASED
  3. AZITHROMYCIN [Concomitant]
     Indication: BRONCHITIS
     Dates: start: 20070423, end: 20070427
  4. PREDNISOLONE [Concomitant]
     Indication: BRONCHITIS
     Dates: start: 20070423

REACTIONS (1)
  - INSOMNIA [None]
